FAERS Safety Report 15405200 (Version 1)
Quarter: 2018Q3

REPORT INFORMATION
  Report Type: Other
  Country: US (occurrence: US)
  Receive Date: 20180920
  Receipt Date: 20180920
  Transmission Date: 20181010
  Serious: Yes (Other)
  Sender: FDA-Public Use
  Company Number: US-LAURUS LABS LIMITED-201800048

PATIENT
  Age: 75 Year
  Sex: Male

DRUGS (2)
  1. TENOFOVIR [Suspect]
     Active Substance: TENOFOVIR
     Indication: PRODUCT USED FOR UNKNOWN INDICATION
  2. GABAPENTIN. [Concomitant]
     Active Substance: GABAPENTIN
     Indication: PRODUCT USED FOR UNKNOWN INDICATION

REACTIONS (6)
  - Fall [Unknown]
  - Multiple fractures [Unknown]
  - Fanconi syndrome acquired [Unknown]
  - Osteomalacia [Unknown]
  - Metabolic acidosis [Unknown]
  - Arthralgia [Unknown]
